FAERS Safety Report 18016242 (Version 1)
Quarter: 2020Q3

REPORT INFORMATION
  Report Type: Report from Study
  Country: MX (occurrence: MX)
  Receive Date: 20200713
  Receipt Date: 20200713
  Transmission Date: 20201103
  Serious: Yes (Disabling, Other)
  Sender: FDA-Public Use
  Company Number: PHHY2016MX068014

PATIENT
  Sex: Female

DRUGS (3)
  1. KRIADEX [Concomitant]
     Indication: ANXIETY
     Dosage: 3 DF, (IN THE NIGHT), 6 YEARS AGO
     Route: 065
  2. PARACETAMOL [Concomitant]
     Active Substance: ACETAMINOPHEN
     Indication: SPINAL CORD DISORDER
     Dosage: SOMETIMES
     Route: 065
  3. DIOVAN [Suspect]
     Active Substance: VALSARTAN
     Indication: HYPERTENSION
     Dosage: 1 DF, QD
     Route: 065
     Dates: start: 201512

REACTIONS (5)
  - Brain neoplasm [Not Recovered/Not Resolved]
  - Blindness [Not Recovered/Not Resolved]
  - Fall [Unknown]
  - Optic nerve injury [Not Recovered/Not Resolved]
  - Blood pressure increased [Not Recovered/Not Resolved]
